FAERS Safety Report 14249939 (Version 1)
Quarter: 2017Q4

REPORT INFORMATION
  Report Type: Spontaneous
  Country: TR (occurrence: TR)
  Receive Date: 20171205
  Receipt Date: 20171205
  Transmission Date: 20180321
  Serious: Yes (Hospitalization, Other)
  Sender: FDA-Public Use
  Company Number: TR-ALEXION PHARMACEUTICALS INC.-A201713347

PATIENT
  Sex: Female
  Weight: 19 kg

DRUGS (2)
  1. SOLIRIS [Suspect]
     Active Substance: ECULIZUMAB
     Indication: OFF LABEL USE
     Dosage: 300 MG, UNK
     Route: 042
     Dates: end: 20170307
  2. SOLIRIS [Suspect]
     Active Substance: ECULIZUMAB
     Indication: C3 GLOMERULOPATHY
     Dosage: 600 MG, UNK
     Route: 042
     Dates: start: 20161010

REACTIONS (3)
  - Renal impairment [Unknown]
  - Pneumonia [Recovered/Resolved]
  - Off label use [Unknown]

NARRATIVE: CASE EVENT DATE: 20170302
